FAERS Safety Report 5642029-1 (Version None)
Quarter: 2008Q1

REPORT INFORMATION
  Report Type: 
  Country: None (occurrence: None)
  Receive Date: 20080227
  Receipt Date: 20080215
  Transmission Date: 20080703
  Serious: Yes (Hospitalization, Other)
  Sender: FDA-Public Use
  Company Number: US-PFIZER INC-2008015421

PATIENT
  Age: 64 Year
  Sex: Female

DRUGS (9)
  1. LYRICA [Suspect]
     Indication: FIBROMYALGIA
     Dates: start: 20070101, end: 20080101
  2. FENTANYL [Concomitant]
  3. PERCOCET [Concomitant]
  4. ZANTAC 150 [Concomitant]
  5. SYNTHROID [Concomitant]
  6. ACETYLSALICYLIC ACID [Concomitant]
  7. VITAMIN D [Concomitant]
  8. ZETIA [Concomitant]
  9. WELLBUTRIN [Concomitant]

REACTIONS (4)
  - DIZZINESS [None]
  - FACE INJURY [None]
  - FACIAL BONES FRACTURE [None]
  - FALL [None]
